FAERS Safety Report 9451066 (Version 1)
Quarter: 2013Q3

REPORT INFORMATION
  Report Type: Spontaneous
  Country: JP (occurrence: JP)
  Receive Date: 20130809
  Receipt Date: 20130809
  Transmission Date: 20140515
  Serious: Yes (Other)
  Sender: FDA-Public Use
  Company Number: JP-JHP PHARMACEUTICALS, LLC-JHP201300505

PATIENT
  Age: 41 Year
  Sex: Male

DRUGS (5)
  1. DANTRIUM [Suspect]
     Indication: NEUROLEPTIC MALIGNANT SYNDROME
     Dosage: 20 MG, DAILY
     Route: 042
     Dates: start: 20130731, end: 20130731
  2. DORMICUM [Suspect]
     Indication: SEDATIVE THERAPY
     Dosage: 10 MG, UNK
     Route: 041
     Dates: start: 20130731
  3. GENINAX [Suspect]
     Indication: PNEUMONIA
     Dosage: UNK
     Route: 048
     Dates: start: 20130731
  4. MEROPEN [Suspect]
     Dosage: UNK
     Dates: start: 20130731
  5. FENTANYL [Suspect]
     Dosage: UNK
     Dates: start: 20130731

REACTIONS (1)
  - Prinzmetal angina [Recovered/Resolved]
